FAERS Safety Report 22606217 (Version 1)
Quarter: 2023Q2

REPORT INFORMATION
  Report Type: Other
  Country: None (occurrence: US)
  Receive Date: 20230615
  Receipt Date: 20230615
  Transmission Date: 20230721
  Serious: Yes (Hospitalization)
  Sender: FDA-Public Use
  Company Number: US-B.Braun Medical Inc.-2142750

PATIENT
  Age: 55 Year
  Sex: Female
  Weight: 52.2 kg

DRUGS (23)
  1. MEROPENEM\SODIUM CHLORIDE [Suspect]
     Active Substance: MEROPENEM\SODIUM CHLORIDE
     Indication: Urinary tract infection
  2. GABAPENTIN [Concomitant]
     Active Substance: GABAPENTIN
  3. BUPROPION [Concomitant]
     Active Substance: BUPROPION
  4. ESCITALOPRAM [Concomitant]
     Active Substance: ESCITALOPRAM OXALATE
  5. MEMANTINE [Concomitant]
     Active Substance: MEMANTINE
  6. MODAFINIL [Concomitant]
     Active Substance: MODAFINIL
  7. ALPRAZOLAM [Concomitant]
     Active Substance: ALPRAZOLAM
  8. CLONAZEPAM [Concomitant]
     Active Substance: CLONAZEPAM
  9. LUBIPROSTONE [Concomitant]
     Active Substance: LUBIPROSTONE
  10. DALFAMPRIDINE [Concomitant]
     Active Substance: DALFAMPRIDINE
  11. ASCORBIC ACID [Concomitant]
     Active Substance: ASCORBIC ACID
  12. CEPHALEXIN [Concomitant]
     Active Substance: CEPHALEXIN
  13. CHOLECALCIFEROL [Concomitant]
     Active Substance: CHOLECALCIFEROL
  14. CRANBERRY [Concomitant]
     Active Substance: CRANBERRY
  15. DESMOPRESSIN [Concomitant]
     Active Substance: DESMOPRESSIN
  16. ACETAMINOPHEN\HYDROCODONE [Concomitant]
     Active Substance: ACETAMINOPHEN\HYDROCODONE
  17. OCRELIZUMAB [Concomitant]
     Active Substance: OCRELIZUMAB
  18. ONDANSETRON [Concomitant]
     Active Substance: ONDANSETRON
  19. OXYBUTYNIN. [Concomitant]
     Active Substance: OXYBUTYNIN CHLORIDE
  20. TRAZODONE [Concomitant]
     Active Substance: TRAZODONE HYDROCHLORIDE
  21. VITAMIN E [Concomitant]
     Active Substance: .ALPHA.-TOCOPHEROL
  22. CEFTRIAXONE [Concomitant]
     Active Substance: CEFTRIAXONE
  23. ERTAPENEM. [Suspect]
     Active Substance: ERTAPENEM SODIUM

REACTIONS (2)
  - Encephalopathy [Recovering/Resolving]
  - Muscle spasticity [Recovering/Resolving]
